FAERS Safety Report 11168547 (Version 1)
Quarter: 2015Q2

REPORT INFORMATION
  Report Type: Spontaneous
  Country: NL (occurrence: NL)
  Receive Date: 20150605
  Receipt Date: 20150605
  Transmission Date: 20150821
  Serious: Yes (Other)
  Sender: FDA-Public Use
  Company Number: NL-IMPAX LABORATORIES, INC-2015-IPXL-00604

PATIENT
  Age: 5 Month
  Sex: Male

DRUGS (1)
  1. DIGOXIN. [Suspect]
     Active Substance: DIGOXIN
     Indication: PRODUCT USED FOR UNKNOWN INDICATION
     Dosage: UNK
     Route: 065

REACTIONS (10)
  - Blood creatinine increased [Unknown]
  - Accidental overdose [Unknown]
  - Electrocardiogram abnormal [Unknown]
  - Hyponatraemia [Unknown]
  - Toxicity to various agents [Recovered/Resolved]
  - Blood urea increased [Unknown]
  - Weight decreased [Unknown]
  - Feeding disorder of infancy or early childhood [Unknown]
  - Hyperkalaemia [Unknown]
  - Vomiting [Unknown]
